FAERS Safety Report 8159980-3 (Version None)
Quarter: 2012Q1

REPORT INFORMATION
  Report Type: 
  Country: None (occurrence: None)
  Receive Date: 20120223
  Receipt Date: 20120216
  Transmission Date: 20120608
  Serious: Yes (Hospitalization)
  Sender: FDA-Public Use
  Company Number: US-GLAXOSMITHKLINE-A0886477A

PATIENT
  Age: 68 Year
  Sex: Male
  Weight: 106.4 kg

DRUGS (6)
  1. TOPROL-XL [Concomitant]
  2. SIMVASTATIN [Concomitant]
  3. COZAAR [Concomitant]
  4. METFORMIN HCL [Concomitant]
  5. AVANDIA [Suspect]
     Indication: DIABETES MELLITUS
     Dosage: 8MG PER DAY
     Route: 048
     Dates: end: 20070701
  6. GLYBURIDE [Concomitant]

REACTIONS (3)
  - CEREBROVASCULAR ACCIDENT [None]
  - MYOCARDIAL INFARCTION [None]
  - CARDIAC FAILURE CONGESTIVE [None]
